FAERS Safety Report 5653891-0 (Version None)
Quarter: 2008Q1

REPORT INFORMATION
  Report Type: 
  Country: None (occurrence: None)
  Receive Date: 20080306
  Receipt Date: 20080226
  Transmission Date: 20080703
  Serious: Yes (Hospitalization)
  Sender: FDA-Public Use
  Company Number: US-ELI_LILLY_AND_COMPANY-US200802006221

PATIENT
  Sex: Female

DRUGS (5)
  1. CYMBALTA [Suspect]
     Dosage: 1 D/F, UNK
  2. PAXIL CR [Concomitant]
     Indication: DEPRESSION
     Dosage: 37.5 MG, DAILY (1/D)
     Dates: start: 20070718, end: 20070918
  3. ELAVIL [Concomitant]
     Dosage: 1 D/F, UNK
  4. BENADRYL [Concomitant]
     Dosage: 1 D/F, UNK
  5. RHINOCORT [Concomitant]

REACTIONS (2)
  - HOSPITALISATION [None]
  - SUICIDAL IDEATION [None]
